FAERS Safety Report 19899395 (Version 1)
Quarter: 2021Q3

REPORT INFORMATION
  Report Type: Report from Study
  Country: DE (occurrence: DE)
  Receive Date: 20210929
  Receipt Date: 20210929
  Transmission Date: 20211014
  Serious: Yes (Hospitalization)
  Sender: FDA-Public Use
  Company Number: DE-MYLANLABS-2021M1066604

PATIENT
  Age: 57 Year
  Sex: Male
  Weight: 117 kg

DRUGS (77)
  1. FLUOROURACIL. [Suspect]
     Active Substance: FLUOROURACIL
     Dosage: 925 MILLIGRAM
     Route: 040
     Dates: start: 20190916
  2. VECTIBIX [Suspect]
     Active Substance: PANITUMUMAB
     Dosage: 700 MILLIGRAM
     Route: 042
     Dates: start: 20190401
  3. VECTIBIX [Suspect]
     Active Substance: PANITUMUMAB
     Dosage: 460 MILLIGRAM
     Route: 042
     Dates: start: 20190527
  4. FOLINIC ACID [Suspect]
     Active Substance: LEUCOVORIN
     Dosage: 930 MILLIGRAM
     Route: 065
     Dates: start: 20200113
  5. AMLODIPIN RATIOPHARM [Concomitant]
     Active Substance: AMLODIPINE MALEATE
     Indication: HYPERTENSION
     Dosage: 5 MILLIGRAM, QD
     Route: 048
     Dates: start: 20100615, end: 20190420
  6. GRANISETRON ACTAVIS [Concomitant]
     Indication: PROPHYLACTIC CHEMOTHERAPY
     Dosage: 1?2 MILLIGRAM CYCLICAL
     Route: 048
     Dates: start: 20181022, end: 20200127
  7. METFORMIN [Concomitant]
     Active Substance: METFORMIN HYDROCHLORIDE
     Indication: DIABETES MELLITUS
     Dosage: 50?1000 MILLIGRAM, BID
  8. FLUOROURACIL. [Suspect]
     Active Substance: FLUOROURACIL
     Dosage: 5500 MILLIGRAM
     Route: 040
     Dates: start: 20190902
  9. VECTIBIX [Suspect]
     Active Substance: PANITUMUMAB
     Dosage: 480 MILLIGRAM
     Route: 042
     Dates: start: 20190930
  10. VECTIBIX [Suspect]
     Active Substance: PANITUMUMAB
     Dosage: 700 MILLIGRAM
     Route: 042
     Dates: start: 20181119
  11. FOLINIC ACID [Suspect]
     Active Substance: LEUCOVORIN
     Dosage: 900 MILLIGRAM
     Route: 065
     Dates: start: 20190429
  12. LANTUS [Concomitant]
     Active Substance: INSULIN GLARGINE
     Indication: DIABETES MELLITUS
     Dosage: 6, QD
     Route: 058
     Dates: start: 20190115
  13. DEXAMETHASON JENAPHARM [Concomitant]
     Active Substance: DEXAMETHASONE
     Indication: PROPHYLACTIC CHEMOTHERAPY
     Dosage: 4?8 MILLIGRAM, CYCLICAL
     Dates: start: 20181022
  14. LIQUIFILM [Concomitant]
     Indication: PROPHYLAXIS
     Dosage: 1,PRN
     Route: 061
     Dates: start: 20181214
  15. FLUOROURACIL. [Suspect]
     Active Substance: FLUOROURACIL
     Dosage: 900 MILLIGRAM
     Route: 040
     Dates: start: 20191014
  16. FLUOROURACIL. [Suspect]
     Active Substance: FLUOROURACIL
     Dosage: 700 MILLIGRAM
     Route: 040
     Dates: start: 20190320
  17. FLUOROURACIL. [Suspect]
     Active Substance: FLUOROURACIL
     Dosage: 890 MILLIGRAM
     Route: 040
     Dates: start: 20191202
  18. FLUOROURACIL. [Suspect]
     Active Substance: FLUOROURACIL
     Dosage: 5500 MILLIGRAM
     Route: 042
     Dates: start: 20190527
  19. FLUOROURACIL. [Suspect]
     Active Substance: FLUOROURACIL
     Dosage: 4300 MILLIGRAM
     Route: 042
     Dates: start: 20190320
  20. VECTIBIX [Suspect]
     Active Substance: PANITUMUMAB
     Dosage: 440 MILLIGRAM
     Route: 042
     Dates: start: 20191014
  21. VECTIBIX [Suspect]
     Active Substance: PANITUMUMAB
     Dosage: 490 MILLIGRAM
     Route: 042
     Dates: start: 20190916
  22. FOLINIC ACID [Suspect]
     Active Substance: LEUCOVORIN
     Dosage: 920 MILLIGRAM
     Route: 065
     Dates: start: 20190701
  23. FOLINIC ACID [Suspect]
     Active Substance: LEUCOVORIN
     Dosage: 920 MILLIGRAM
     Route: 065
     Dates: start: 20191216
  24. FOLINIC ACID [Suspect]
     Active Substance: LEUCOVORIN
     Dosage: 920 MILLIGRAM
     Route: 065
     Dates: start: 20181119
  25. FOLINIC ACID [Suspect]
     Active Substance: LEUCOVORIN
     Dosage: 930 MILLIGRAM
     Route: 065
     Dates: start: 20190617
  26. AMLODIPIN RATIOPHARM [Concomitant]
     Active Substance: AMLODIPINE MALEATE
     Indication: PROPHYLAXIS
  27. DOXYCYCLIN                         /00055701/ [Concomitant]
     Active Substance: DOXYCYCLINE
     Indication: RASH
     Dosage: 100 MILLIGRAM, BID
     Route: 048
     Dates: start: 20190315
  28. OXALIPLATIN. [Suspect]
     Active Substance: OXALIPLATIN
     Indication: COLORECTAL CANCER METASTATIC
     Dosage: 190 MILLIGRAM
     Route: 065
     Dates: start: 20190429
  29. VECTIBIX [Suspect]
     Active Substance: PANITUMUMAB
     Dosage: 500 MILLIGRAM
     Route: 042
     Dates: start: 20190819
  30. FOLINIC ACID [Suspect]
     Active Substance: LEUCOVORIN
     Indication: COLORECTAL CANCER METASTATIC
     Dosage: 930 MILLIGRAM
     Route: 065
     Dates: start: 20190401
  31. FOLINIC ACID [Suspect]
     Active Substance: LEUCOVORIN
     Dosage: 195 MILLIGRAM
     Dates: start: 20181203
  32. FOLINIC ACID [Suspect]
     Active Substance: LEUCOVORIN
     Dosage: 900 MILLIGRAM
     Route: 065
     Dates: start: 20191014
  33. FOLINIC ACID [Suspect]
     Active Substance: LEUCOVORIN
     Dosage: 920 MILLIGRAM
     Route: 065
     Dates: start: 20181217
  34. FOLINIC ACID [Suspect]
     Active Substance: LEUCOVORIN
     Dosage: 890 MILLIGRAM
     Route: 065
     Dates: start: 20191202
  35. ERYTHROMYCINUM                     /00020901/ [Concomitant]
     Indication: RASH
     Dosage: 1,PRN
     Route: 061
     Dates: start: 20190306
  36. CALCIUM D3 [Concomitant]
     Active Substance: CALCIUM\CHOLECALCIFEROL
     Indication: PROPHYLAXIS
     Dosage: 500 MILLIGRAM, BID
     Route: 048
     Dates: start: 20190418
  37. DOXYCYCLIN RATIOPHARM [Concomitant]
     Indication: PROPHYLAXIS
     Dosage: 100 MILLIGRAM, BID
     Route: 048
     Dates: start: 20181214
  38. VECTIBIX [Suspect]
     Active Substance: PANITUMUMAB
     Indication: PRODUCT USED FOR UNKNOWN INDICATION
     Dosage: 370 MILLIGRAM
     Route: 042
     Dates: start: 20190320
  39. FOLINIC ACID [Suspect]
     Active Substance: LEUCOVORIN
     Dosage: 920 MILLIGRAM
     Route: 065
     Dates: start: 20191216
  40. CELESTAN                           /00008501/ [Concomitant]
     Active Substance: BETAMETHASONE
     Indication: PROPHYLAXIS
     Dosage: 100 MILLIGRAM, PRN
     Route: 061
     Dates: start: 20190304
  41. POLYSORBATE 20. [Concomitant]
     Active Substance: POLYSORBATE 20
     Indication: RASH
     Dosage: 1, PRN
     Route: 061
     Dates: start: 20190328
  42. FLUOROURACIL. [Suspect]
     Active Substance: FLUOROURACIL
     Dosage: 925 MILLIGRAM
     Route: 042
     Dates: start: 20181119
  43. FLUOROURACIL. [Suspect]
     Active Substance: FLUOROURACIL
     Dosage: 5500 MILLIGRAM
     Route: 042
     Dates: start: 20181119
  44. FLUOROURACIL. [Suspect]
     Active Substance: FLUOROURACIL
     Dosage: 5500 MILLIGRAM
     Route: 042
     Dates: start: 20191216
  45. FLUOROURACIL. [Suspect]
     Active Substance: FLUOROURACIL
     Dosage: 925 MILLIGRAM
     Route: 040
     Dates: start: 20191216
  46. FLUOROURACIL. [Suspect]
     Active Substance: FLUOROURACIL
     Dosage: 925 MILLIGRAM
     Route: 040
     Dates: start: 20190527
  47. FLUOROURACIL. [Suspect]
     Active Substance: FLUOROURACIL
     Dosage: 5450 MILLIGRAM
     Route: 042
     Dates: start: 20190429
  48. FLUOROURACIL. [Suspect]
     Active Substance: FLUOROURACIL
     Dosage: 5600 MILLIGRAM
     Route: 042
     Dates: start: 20190401
  49. FLUOROURACIL. [Suspect]
     Active Substance: FLUOROURACIL
     Dosage: 5350 MILLIGRAM
     Route: 042
     Dates: start: 20191202
  50. VECTIBIX [Suspect]
     Active Substance: PANITUMUMAB
     Dosage: 470 MILLIGRAM
     Route: 042
     Dates: start: 20190701
  51. VECTIBIX [Suspect]
     Active Substance: PANITUMUMAB
     Dosage: 640 MILLIGRAM
     Route: 042
     Dates: start: 20190513
  52. FOLINIC ACID [Suspect]
     Active Substance: LEUCOVORIN
     Dosage: 700 MILLIGRAM
     Route: 065
     Dates: start: 20190320
  53. FOLINIC ACID [Suspect]
     Active Substance: LEUCOVORIN
     Dosage: 920 MILLIGRAM
     Route: 065
     Dates: start: 20190527
  54. FOLINIC ACID [Suspect]
     Active Substance: LEUCOVORIN
     Dosage: 925 MILLIGRAM
     Route: 065
     Dates: start: 20200127
  55. FORTIMEL [Concomitant]
     Active Substance: DIETARY SUPPLEMENT
     Indication: PROPHYLAXIS
     Dosage: 1, TID
     Route: 048
     Dates: start: 20191014
  56. ALLOPURINOL RATIOPHARM [Concomitant]
     Active Substance: ALLOPURINOL
     Indication: BLOOD URIC ACID INCREASED
     Dosage: 150 MILLIGRAM, QD
     Route: 048
     Dates: start: 19980615
  57. CLINDAMYCIN RATIOPHARM [Concomitant]
     Active Substance: CLINDAMYCIN PHOSPHATE
     Indication: PROPHYLAXIS
     Dosage: 600 MILLIGRAM, TID
     Route: 048
     Dates: start: 20181119, end: 20181201
  58. BETAGALEN [Concomitant]
     Indication: RASH
     Dosage: 1, PRN
     Route: 061
     Dates: start: 20190527
  59. VELMETIA [Concomitant]
     Active Substance: METFORMIN\SITAGLIPTIN
     Indication: DIABETES MELLITUS
     Dosage: 1000 MILLIGRAM, QD, BID
     Route: 048
     Dates: start: 20120615
  60. RAMILICH [Concomitant]
     Active Substance: RAMIPRIL
     Indication: PROPHYLAXIS
     Dosage: UNK
  61. FLUOROURACIL. [Suspect]
     Active Substance: FLUOROURACIL
     Dosage: 5400 MILLIGRAM
     Route: 042
     Dates: start: 20191014
  62. FLUOROURACIL. [Suspect]
     Active Substance: FLUOROURACIL
     Dosage: 925 MILLIGRAM
     Route: 040
     Dates: start: 20190401
  63. FLUOROURACIL. [Suspect]
     Active Substance: FLUOROURACIL
     Dosage: 900 MILLIGRAM
     Route: 040
     Dates: start: 20190429
  64. OXALIPLATIN. [Suspect]
     Active Substance: OXALIPLATIN
     Dosage: 195 MILLIGRAM
     Route: 065
     Dates: start: 20181119
  65. METRONIDAZOLUM [Concomitant]
     Active Substance: METRONIDAZOLE
     Indication: RASH
     Dosage: 1, PRN
     Route: 061
     Dates: start: 20190328
  66. METRONIDAZOLE                      /00012503/ [Concomitant]
     Active Substance: METRONIDAZOLE SODIUM
     Indication: SKIN DISORDER PROPHYLAXIS
     Dosage: 1 MILLIGRAM, PRN
     Route: 061
     Dates: start: 20190218
  67. ERYTHROMYCIN. [Concomitant]
     Active Substance: ERYTHROMYCIN
     Indication: PROPHYLAXIS
     Dosage: 1, PRN
     Route: 061
     Dates: start: 20181214
  68. RAMILICH [Concomitant]
     Active Substance: RAMIPRIL
     Indication: HYPERTENSION
     Dosage: 5 MILLIGRAM, QD
     Route: 048
     Dates: start: 20100615, end: 20190420
  69. FLUOROURACIL. [Suspect]
     Active Substance: FLUOROURACIL
     Indication: COLORECTAL CANCER METASTATIC
     Dosage: 925 MILLIGRAM
     Route: 042
     Dates: start: 20191230
  70. FLUOROURACIL. [Suspect]
     Active Substance: FLUOROURACIL
     Dosage: 5500 MILLIGRAM
     Route: 042
     Dates: start: 20190916
  71. FLUOROURACIL. [Suspect]
     Active Substance: FLUOROURACIL
     Dosage: 925 MILLIGRAM
     Route: 042
     Dates: start: 20190902
  72. OXALIPLATIN. [Suspect]
     Active Substance: OXALIPLATIN
     Dosage: 150 MILLIGRAM
     Route: 065
     Dates: start: 20190320
  73. OXALIPLATIN. [Suspect]
     Active Substance: OXALIPLATIN
     Dosage: 195 MILLIGRAM
     Route: 065
     Dates: start: 20190401
  74. VECTIBIX [Suspect]
     Active Substance: PANITUMUMAB
     Dosage: 480 MILLIGRAM
     Route: 042
     Dates: start: 20190902
  75. HYLO?VISION [Concomitant]
     Active Substance: HYALURONATE SODIUM
     Indication: EYE DISORDER PROPHYLAXIS
     Dosage: 1, BID
     Route: 061
     Dates: start: 20190729
  76. ALLOPURINOL RATIOPHARM [Concomitant]
     Active Substance: ALLOPURINOL
     Indication: PROPHYLAXIS
  77. GRANISETRON B. BRAUN [Concomitant]
     Active Substance: GRANISETRON HYDROCHLORIDE
     Indication: PROPHYLACTIC CHEMOTHERAPY
     Dosage: 1 MILLIGRAM, CYCLICAL
     Route: 042
     Dates: start: 20181022

REACTIONS (1)
  - Functional gastrointestinal disorder [Recovering/Resolving]

NARRATIVE: CASE EVENT DATE: 20191022
